FAERS Safety Report 19287883 (Version 1)
Quarter: 2021Q2

REPORT INFORMATION
  Report Type: Report from Study
  Country: US (occurrence: US)
  Receive Date: 20210521
  Receipt Date: 20210521
  Transmission Date: 20210717
  Serious: Yes (Other)
  Sender: FDA-Public Use
  Company Number: US-MALLINCKRODT PHARMACEUTICALS-T202102186

PATIENT
  Age: 25 Year
  Sex: Female
  Weight: 86 kg

DRUGS (4)
  1. METFORMIN [Concomitant]
     Active Substance: METFORMIN HYDROCHLORIDE
     Indication: PRODUCT USED FOR UNKNOWN INDICATION
     Dosage: 1000 MILLIGRAM, BID
     Route: 065
  2. LASIX [Concomitant]
     Active Substance: FUROSEMIDE
     Indication: PRODUCT USED FOR UNKNOWN INDICATION
     Dosage: 20 MILLIGRAM, QD
     Route: 065
  3. REPOSITORY CORTICOTROPIN INJECTION [Suspect]
     Active Substance: CORTICOTROPIN
     Indication: MULTIPLE SCLEROSIS
     Dosage: 80 UNITS, 5 DAYS ? ONLY GOT THROUGH 2 DAYS OF THERAPY
     Route: 058
     Dates: start: 20210504, end: 202105
  4. ANTIHISTAMIN [Concomitant]
     Active Substance: ANTIHISTAMINES NOS
     Indication: PELVIC INFLAMMATORY DISEASE
     Dosage: 8 MILLILITER, TID
     Route: 065

REACTIONS (5)
  - Rash [Not Recovered/Not Resolved]
  - Vaginal haemorrhage [Unknown]
  - Rectal haemorrhage [Unknown]
  - Abdominal pain [Unknown]
  - Swelling [Not Recovered/Not Resolved]

NARRATIVE: CASE EVENT DATE: 20210504
